FAERS Safety Report 15133759 (Version 3)
Quarter: 2018Q3

REPORT INFORMATION
  Report Type: Spontaneous
  Country: JP (occurrence: JP)
  Receive Date: 20180712
  Receipt Date: 20180824
  Transmission Date: 20181010
  Serious: Yes (Death)
  Sender: FDA-Public Use
  Company Number: JP-B.I. PHARMACEUTICALS,INC./RIDGEFIELD-2018-NB-003882

PATIENT
  Age: 84 Year
  Sex: Female

DRUGS (1)
  1. PRIZBIND [Suspect]
     Active Substance: IDARUCIZUMAB
     Indication: PROCOAGULANT THERAPY
     Dosage: THERAPY START DATE: 08?JUL?2018;12:15
     Route: 042
     Dates: end: 20180708

REACTIONS (1)
  - Cerebellar haemorrhage [Fatal]

NARRATIVE: CASE EVENT DATE: 20180708
